FAERS Safety Report 7630295-2 (Version None)
Quarter: 2011Q3

REPORT INFORMATION
  Report Type: 
  Country: None (occurrence: None)
  Receive Date: 20110722
  Receipt Date: 20110718
  Transmission Date: 20111222
  Serious: Yes (Life-Threatening)
  Sender: FDA-Public Use
  Company Number: GXKR2011DE02306

PATIENT
  Age: 71 Year
  Sex: Male

DRUGS (11)
  1. CLOPIDOGREL [Concomitant]
     Indication: CORONARY ARTERY DISEASE
     Dosage: 75 MG/DAY
     Route: 048
  2. BISOPROLOL [Concomitant]
     Route: 048
  3. RAMIPRIL [Concomitant]
     Route: 048
  4. CLARITHROMYCIN [Concomitant]
     Dosage: 420 MG, UNK
     Route: 042
     Dates: start: 20110520
  5. TAMSULOSIN HCL [Concomitant]
     Route: 048
  6. AMLODIPINE [Concomitant]
     Route: 048
  7. CLARITHROMYCIN [Concomitant]
     Indication: PNEUMONIA CHLAMYDIAL
     Dosage: 500 MG, BID
     Route: 048
     Dates: end: 20101213
  8. CLARITHROMYCIN [Concomitant]
     Dosage: 415 MG, UNK
     Route: 042
     Dates: start: 20110705
  9. TORSEMIDE [Concomitant]
     Route: 048
  10. SIMVASTATIN [Suspect]
     Indication: CORONARY ARTERY DISEASE
     Dosage: 40 MG/DAY
     Route: 048
     Dates: end: 20101213
  11. ASPIRIN [Concomitant]
     Indication: CORONARY ARTERY DISEASE
     Dosage: 100 MG/DAY
     Route: 048

REACTIONS (2)
  - PARAPARESIS [None]
  - RHABDOMYOLYSIS [None]
